FAERS Safety Report 10562138 (Version 2)
Quarter: 2014Q4

REPORT INFORMATION
  Report Type: Report from Study
  Country: US (occurrence: US)
  Receive Date: 20141104
  Receipt Date: 20141111
  Transmission Date: 20150529
  Serious: Yes (Other)
  Sender: FDA-Public Use
  Company Number: US-BIOGENIDEC-2014BI113594

PATIENT
  Age: 61 Year
  Sex: Female

DRUGS (1)
  1. TYSABRI [Suspect]
     Active Substance: NATALIZUMAB
     Indication: MULTIPLE SCLEROSIS
     Route: 042
     Dates: start: 20130409, end: 20141013

REACTIONS (17)
  - Wound [Unknown]
  - Asthenia [Not Recovered/Not Resolved]
  - Dyspnoea [Unknown]
  - Candida infection [Recovered/Resolved]
  - Cognitive disorder [Not Recovered/Not Resolved]
  - Renal pain [Unknown]
  - Sepsis [Unknown]
  - Joint hyperextension [Not Recovered/Not Resolved]
  - Pain in extremity [Unknown]
  - Gastroenteritis viral [Recovered/Resolved]
  - Cellulitis [Recovered/Resolved]
  - Urinary tract infection [Recovered/Resolved]
  - Fall [Recovered/Resolved]
  - Herpes zoster [Recovered/Resolved]
  - Herpes simplex [Recovered/Resolved]
  - Bronchitis [Recovered/Resolved]
  - Infection [Unknown]

NARRATIVE: CASE EVENT DATE: 2013
